FAERS Safety Report 24054405 (Version 1)
Quarter: 2024Q3

REPORT INFORMATION
  Report Type: Spontaneous
  Country: TW (occurrence: TW)
  Receive Date: 20240705
  Receipt Date: 20240705
  Transmission Date: 20241017
  Serious: Yes (Other)
  Sender: RANBAXY
  Company Number: TW-SUN PHARMACEUTICAL INDUSTRIES LTD-2024R1-454707

PATIENT
  Age: 36 Year
  Sex: Female

DRUGS (4)
  1. MIFEPRISTONE [Suspect]
     Active Substance: MIFEPRISTONE
     Indication: Abortion
     Dosage: 600 MILLIGRAM, WEEKLY
     Route: 048
  2. MISOPROSTOL [Suspect]
     Active Substance: MISOPROSTOL
     Indication: Abortion
     Dosage: 600 MICROGRAM
     Route: 048
  3. MISOPROSTOL [Suspect]
     Active Substance: MISOPROSTOL
     Dosage: 400 MICROGRAM, BID
     Route: 065
  4. DOXYCYCLINE [Suspect]
     Active Substance: DOXYCYCLINE\DOXYCYCLINE HYCLATE
     Indication: Abortion
     Dosage: 100 MILLIGRAM, BID
     Route: 048

REACTIONS (2)
  - Treatment failure [Unknown]
  - Abscess [Unknown]
